FAERS Safety Report 7911258-6 (Version None)
Quarter: 2011Q4

REPORT INFORMATION
  Report Type: 
  Country: None (occurrence: None)
  Receive Date: 20111114
  Receipt Date: 20111108
  Transmission Date: 20120403
  Serious: Yes (Other)
  Sender: FDA-Public Use
  Company Number: CN-GENZYME-THYM-1002880

PATIENT
  Age: 10 Year
  Sex: Female

DRUGS (6)
  1. METHYLPREDNISOLONE [Concomitant]
     Indication: PRODUCT USED FOR UNKNOWN INDICATION
     Dosage: 1 MG/KG, QD
     Route: 041
  2. THYMOGLOBULIN [Suspect]
     Indication: APLASTIC ANAEMIA
     Dosage: 2.5 MG/KG, QD
     Route: 042
  3. METHYLPREDNISOLONE [Concomitant]
     Dosage: UNK
     Route: 065
  4. IBUPROFEN [Concomitant]
     Indication: ALLERGY PROPHYLAXIS
  5. PROMETHAZINE [Concomitant]
     Indication: ALLERGY PROPHYLAXIS
     Route: 048
  6. CYCLOSPORINE [Concomitant]
     Indication: PRODUCT USED FOR UNKNOWN INDICATION
     Route: 048

REACTIONS (2)
  - APLASTIC ANAEMIA [None]
  - ENCEPHALITIS HERPES [None]
